FAERS Safety Report 20701988 (Version 2)
Quarter: 2022Q2

REPORT INFORMATION
  Report Type: Report from Study
  Country: IT (occurrence: IT)
  Receive Date: 20220412
  Receipt Date: 20220426
  Transmission Date: 20220720
  Serious: Yes (Death, Other)
  Sender: FDA-Public Use
  Company Number: IT-NOVARTISPH-NVSC2022IT082343

PATIENT
  Age: 74 Year
  Sex: Male
  Weight: 67 kg

DRUGS (1)
  1. RYDAPT [Suspect]
     Active Substance: MIDOSTAURIN
     Indication: Systemic mastocytosis
     Dosage: 100 MG, BID
     Route: 048
     Dates: start: 20190429, end: 20220313

REACTIONS (10)
  - Cachexia [Fatal]
  - Diabetic metabolic decompensation [Fatal]
  - Interstitial lung disease [Fatal]
  - Anaemia [Fatal]
  - Leukocytosis [Fatal]
  - Systemic mastocytosis [Fatal]
  - Malignant neoplasm progression [Fatal]
  - Suspected COVID-19 [Unknown]
  - Anosmia [Unknown]
  - Ageusia [Unknown]

NARRATIVE: CASE EVENT DATE: 20220201
